FAERS Safety Report 6208234-0 (Version None)
Quarter: 2009Q2

REPORT INFORMATION
  Report Type: 
  Country: None (occurrence: None)
  Receive Date: 20090529
  Receipt Date: 20090519
  Transmission Date: 20091009
  Serious: Yes (Other)
  Sender: FDA-Public Use
  Company Number: JP-BAYER-200911636BYL

PATIENT
  Age: 61 Year
  Sex: Male
  Weight: 53 kg

DRUGS (23)
  1. FLUDARA [Suspect]
     Indication: ACUTE MYELOID LEUKAEMIA
     Dosage: AS USED: 30 MG/M2  UNIT DOSE: 50 MG
     Route: 042
     Dates: start: 20081121, end: 20081126
  2. ALKERAN [Concomitant]
     Indication: ACUTE MYELOID LEUKAEMIA
     Dosage: AS USED: 40 MG/M2
     Route: 042
     Dates: start: 20081125, end: 20081126
  3. BUSULFEX [Concomitant]
     Indication: ACUTE MYELOID LEUKAEMIA
     Dosage: AS USED: 3.2 MG/KG
     Route: 042
     Dates: start: 20081121, end: 20081123
  4. CYLOCIDE [Concomitant]
     Indication: ACUTE MYELOID LEUKAEMIA
     Dosage: AS USED: 31 MG
     Route: 037
     Dates: start: 20081120, end: 20081120
  5. CYLOCIDE [Concomitant]
     Dosage: AS USED: 153.6 MG
     Route: 041
     Dates: start: 20081120, end: 20081120
  6. METHOTREXATE [Concomitant]
     Indication: ACUTE MYELOID LEUKAEMIA
     Dosage: AS USED: 11 MG
     Route: 037
     Dates: start: 20081204, end: 20081204
  7. METHOTREXATE [Concomitant]
     Dosage: AS USED: 12 MG
     Route: 037
     Dates: start: 20081120, end: 20081120
  8. METHOTREXATE [Concomitant]
     Dosage: AS USED: 11 MG
     Route: 037
     Dates: start: 20081201, end: 20081201
  9. PREDONINE IV [Concomitant]
     Indication: ACUTE MYELOID LEUKAEMIA
     Dosage: AS USED: 15 MG  UNIT DOSE: 15 MG
     Route: 037
     Dates: start: 20081120, end: 20081120
  10. SANDIMMUNE [Concomitant]
     Dosage: TOTAL DAILY DOSE: 1.2 ML
     Route: 041
     Dates: start: 20081231, end: 20090101
  11. SANDIMMUNE [Concomitant]
     Dosage: TOTAL DAILY DOSE: 1.8 ML
     Route: 041
     Dates: start: 20081222, end: 20081225
  12. SANDIMMUNE [Concomitant]
     Route: 041
     Dates: start: 20081128, end: 20081203
  13. SANDIMMUNE [Concomitant]
     Dosage: TOTAL DAILY DOSE: 1.3 ML
     Route: 041
     Dates: start: 20081228, end: 20081230
  14. SANDIMMUNE [Concomitant]
     Route: 041
     Dates: start: 20081205, end: 20081220
  15. NEORAL [Concomitant]
     Dosage: TOTAL DAILY DOSE: 100 MG
     Route: 048
     Dates: start: 20090109, end: 20090115
  16. NEORAL [Concomitant]
     Route: 048
     Dates: start: 20090116, end: 20090120
  17. NEORAL [Concomitant]
     Dosage: TOTAL DAILY DOSE: 40 MG
     Route: 048
     Dates: start: 20090122, end: 20090128
  18. NEORAL [Concomitant]
     Dosage: TOTAL DAILY DOSE: 10 MG  UNIT DOSE: 10 MG
     Route: 048
     Dates: start: 20090212, end: 20090220
  19. NEORAL [Concomitant]
     Dosage: TOTAL DAILY DOSE: 20 MG
     Route: 048
     Dates: start: 20090209, end: 20090211
  20. NEORAL [Concomitant]
     Route: 048
     Dates: start: 20090129, end: 20090204
  21. DEPAKENE [Concomitant]
     Indication: CONVULSION PROPHYLAXIS
     Dosage: TOTAL DAILY DOSE: 600 MG  UNIT DOSE: 200 MG
     Route: 048
     Dates: start: 20081120, end: 20081124
  22. CONCENTRATED RED CELLS [Concomitant]
     Indication: PACKED RED BLOOD CELL TRANSFUSION
     Route: 042
     Dates: start: 20080926, end: 20081226
  23. PLATELETS [Concomitant]
     Indication: PLATELET TRANSFUSION
     Route: 042
     Dates: start: 20080925, end: 20081222

REACTIONS (1)
  - ACUTE GRAFT VERSUS HOST DISEASE IN INTESTINE [None]
